FAERS Safety Report 17761369 (Version 2)
Quarter: 2020Q4

REPORT INFORMATION
  Report Type: Spontaneous
  Country: US (occurrence: US)
  Receive Date: 20200508
  Receipt Date: 20201030
  Transmission Date: 20210113
  Serious: Yes (Hospitalization, Other)
  Sender: FDA-Public Use
  Company Number: US-ASTRAZENECA-2020SE58186

PATIENT
  Age: 24489 Day
  Sex: Female
  Weight: 99.8 kg

DRUGS (49)
  1. SERTRALINE [Concomitant]
     Active Substance: SERTRALINE HYDROCHLORIDE
     Indication: AFFECTIVE DISORDER
     Route: 065
     Dates: start: 201208, end: 201703
  2. LEVOTHYROXINE. [Concomitant]
     Active Substance: LEVOTHYROXINE
  3. ALLOPURINOL. [Concomitant]
     Active Substance: ALLOPURINOL
  4. GLIPIZIDE. [Concomitant]
     Active Substance: GLIPIZIDE
  5. AMIODARONE [Concomitant]
     Active Substance: AMIODARONE
  6. HYDROCHLOROTHIAZIDE. [Concomitant]
     Active Substance: HYDROCHLOROTHIAZIDE
  7. PROTONIX [Suspect]
     Active Substance: PANTOPRAZOLE SODIUM
     Indication: GASTROOESOPHAGEAL REFLUX DISEASE
     Route: 065
     Dates: start: 2005, end: 2017
  8. SPIRONOLACTONE. [Concomitant]
     Active Substance: SPIRONOLACTONE
     Indication: DIURETIC THERAPY
     Route: 065
     Dates: start: 201201
  9. PREDNISONE. [Concomitant]
     Active Substance: PREDNISONE
     Indication: STEROID THERAPY
     Route: 065
     Dates: start: 201212, end: 201701
  10. AMIODARONE [Concomitant]
     Active Substance: AMIODARONE
  11. LISINOPRIL. [Concomitant]
     Active Substance: LISINOPRIL
  12. COREG [Concomitant]
     Active Substance: CARVEDILOL
  13. NEXIUM [Suspect]
     Active Substance: ESOMEPRAZOLE MAGNESIUM
     Indication: GASTROOESOPHAGEAL REFLUX DISEASE
     Route: 048
     Dates: start: 200510, end: 200903
  14. CARVEDILOL. [Concomitant]
     Active Substance: CARVEDILOL
     Indication: CARDIAC DISORDER
     Route: 065
     Dates: start: 201201, end: 201701
  15. METFORMIN [Concomitant]
     Active Substance: METFORMIN HYDROCHLORIDE
     Indication: DIABETES MELLITUS
     Route: 065
     Dates: start: 201301, end: 201303
  16. PLAQUENIL [Concomitant]
     Active Substance: HYDROXYCHLOROQUINE SULFATE
  17. NEXIUM [Suspect]
     Active Substance: ESOMEPRAZOLE MAGNESIUM
     Indication: GASTROOESOPHAGEAL REFLUX DISEASE
     Route: 048
  18. PROTONIX [Suspect]
     Active Substance: PANTOPRAZOLE SODIUM
     Indication: GASTROOESOPHAGEAL REFLUX DISEASE
     Route: 065
     Dates: start: 201006, end: 201103
  19. PROTONIX [Suspect]
     Active Substance: PANTOPRAZOLE SODIUM
     Indication: GASTROOESOPHAGEAL REFLUX DISEASE
     Dosage: GENERIC
     Route: 065
     Dates: start: 201104, end: 201202
  20. CYCLOBENZAPRINE. [Concomitant]
     Active Substance: CYCLOBENZAPRINE
     Indication: MUSCLE RELAXANT THERAPY
     Route: 065
     Dates: start: 201204, end: 201410
  21. VITAMIN D [Concomitant]
     Active Substance: VITAMIN D NOS
  22. KLOR-CON [Concomitant]
     Active Substance: POTASSIUM CHLORIDE
  23. COLCRYS [Concomitant]
     Active Substance: COLCHICINE
  24. ZANTAC [Concomitant]
     Active Substance: RANITIDINE HYDROCHLORIDE
     Dates: start: 202003
  25. JANUVIA [Concomitant]
     Active Substance: SITAGLIPTIN PHOSPHATE
  26. MUPIROCIN. [Concomitant]
     Active Substance: MUPIROCIN
  27. ENOXAPARIN [Concomitant]
     Active Substance: ENOXAPARIN
  28. MOXIFLOXACIN. [Concomitant]
     Active Substance: MOXIFLOXACIN
  29. NAPROXEN. [Concomitant]
     Active Substance: NAPROXEN
  30. ACTOS [Concomitant]
     Active Substance: PIOGLITAZONE HYDROCHLORIDE
  31. ZETIA [Concomitant]
     Active Substance: EZETIMIBE
  32. NEXIUM [Suspect]
     Active Substance: ESOMEPRAZOLE MAGNESIUM
     Indication: GASTROOESOPHAGEAL REFLUX DISEASE
     Route: 048
     Dates: start: 200911, end: 201005
  33. TRAMADOL. [Concomitant]
     Active Substance: TRAMADOL
  34. IRON [Concomitant]
     Active Substance: IRON
  35. ULORIC [Concomitant]
     Active Substance: FEBUXOSTAT
  36. NEXIUM [Suspect]
     Active Substance: ESOMEPRAZOLE MAGNESIUM
     Indication: GASTROOESOPHAGEAL REFLUX DISEASE
     Route: 048
     Dates: start: 2005, end: 2017
  37. FUROSEMIDE. [Concomitant]
     Active Substance: FUROSEMIDE
     Indication: DIURETIC THERAPY
     Route: 065
     Dates: start: 201201, end: 201406
  38. DIOVAN [Concomitant]
     Active Substance: VALSARTAN
     Indication: BLOOD PRESSURE MEASUREMENT
     Route: 065
     Dates: start: 201301, end: 201304
  39. SYNTHROID [Concomitant]
     Active Substance: LEVOTHYROXINE SODIUM
  40. PROAIR HFA [Concomitant]
     Active Substance: ALBUTEROL SULFATE
  41. ZOLOFT [Concomitant]
     Active Substance: SERTRALINE HYDROCHLORIDE
  42. ASPIRIN. [Concomitant]
     Active Substance: ASPIRIN
  43. CENTRUM [Concomitant]
     Active Substance: VITAMINS
  44. PROTONIX [Suspect]
     Active Substance: PANTOPRAZOLE SODIUM
     Indication: GASTROOESOPHAGEAL REFLUX DISEASE
     Dosage: GENERIC
     Route: 065
     Dates: start: 201301, end: 201506
  45. LEVOTHYROXINE. [Concomitant]
     Active Substance: LEVOTHYROXINE
     Indication: THYROID THERAPY
     Route: 065
     Dates: start: 201208, end: 201502
  46. GLIPIZIDE. [Concomitant]
     Active Substance: GLIPIZIDE
     Indication: DIABETES MELLITUS
     Route: 065
     Dates: start: 201208, end: 201702
  47. MOBIC [Concomitant]
     Active Substance: MELOXICAM
  48. VERAPAMIL [Concomitant]
     Active Substance: VERAPAMIL HYDROCHLORIDE
  49. LEVOTHYROXINE SODIUM. [Concomitant]
     Active Substance: LEVOTHYROXINE SODIUM

REACTIONS (1)
  - Chronic kidney disease [Not Recovered/Not Resolved]

NARRATIVE: CASE EVENT DATE: 20111129
